FAERS Safety Report 8901369 (Version 2)
Quarter: 2013Q2

REPORT INFORMATION
  Report Type: Report from Study
  Country: IL (occurrence: IL)
  Receive Date: 20121109
  Receipt Date: 20130530
  Transmission Date: 20140414
  Serious: Yes (Hospitalization)
  Sender: FDA-Public Use
  Company Number: IL-ROCHE-1152476

PATIENT
  Age: 65 Year
  Sex: Male
  Weight: 65 kg

DRUGS (7)
  1. PEG-INTERFERON ALFA 2A [Suspect]
     Indication: CHRONIC HEPATITIS C
     Dosage: LAST DOSE PRIOR TO SAE 20/SEP/2012
     Route: 058
     Dates: start: 20120710, end: 20120924
  2. RIBAVIRIN [Suspect]
     Indication: CHRONIC HEPATITIS C
     Dosage: LAST DOSE PRIOR TO SAE 24/SEP/2012
     Route: 048
     Dates: start: 20120710, end: 20120924
  3. ELTROXIN [Concomitant]
  4. XATRAL [Concomitant]
  5. PLAVIX [Concomitant]
  6. NORMITEN [Concomitant]
  7. SIMVASTATIN [Concomitant]

REACTIONS (1)
  - Optic neuropathy [Recovered/Resolved with Sequelae]
